FAERS Safety Report 16178702 (Version 1)
Quarter: 2019Q2

REPORT INFORMATION
  Report Type: Spontaneous
  Country: DE (occurrence: DE)
  Receive Date: 20190410
  Receipt Date: 20190410
  Transmission Date: 20190711
  Serious: No
  Sender: FDA-Public Use
  Company Number: DE-ALKEM LABORATORIES LIMITED-DE-ALKEM-2018-06839

PATIENT

DRUGS (10)
  1. CITALOPRAM [Suspect]
     Active Substance: CITALOPRAM HYDROBROMIDE
     Indication: DEPRESSION
     Dosage: 20 MG, OD
     Route: 048
     Dates: start: 20170221, end: 20170411
  2. DEKRISTOL [Concomitant]
     Active Substance: CHOLECALCIFEROL
     Indication: VITAMIN D DEFICIENCY
     Dosage: 2000 IU (EVERY 4 TH DAY)
     Route: 048
     Dates: start: 20170202, end: 20170411
  3. SALOFALK [MESALAZINE] [Concomitant]
     Active Substance: MESALAMINE
     Indication: CROHN^S DISEASE
     Dosage: 3000 MG/DL, UNK ()
     Route: 048
     Dates: start: 20170119, end: 20170221
  4. QUETIAPINE FUMARATE. [Suspect]
     Active Substance: QUETIAPINE FUMARATE
     Indication: DEPRESSION
     Dosage: 100 MG, QD
     Route: 048
     Dates: start: 20170221, end: 20170411
  5. AURORIX [Concomitant]
     Active Substance: MOCLOBEMIDE
     Indication: DEPRESSION
     Dosage: 600 MG, QD
     Route: 048
     Dates: start: 20170119, end: 20170220
  6. FOLSAN [Concomitant]
     Active Substance: FOLIC ACID
     Indication: PROPHYLAXIS OF NEURAL TUBE DEFECT
     Dosage: UNKNOWN
     Route: 048
     Dates: start: 20170213, end: 20170407
  7. CYTOTEC [Concomitant]
     Active Substance: MISOPROSTOL
     Indication: ABORTION INDUCED
     Dosage: UNKNOWN
     Route: 048
     Dates: start: 20170411, end: 20170411
  8. PROMETHAZINE [Concomitant]
     Active Substance: PROMETHAZINE\PROMETHAZINE HYDROCHLORIDE
     Indication: RESTLESSNESS
     Dosage: UNKNOWN
     Route: 048
     Dates: start: 20170202, end: 20170221
  9. PARACETAMOL [Concomitant]
     Active Substance: ACETAMINOPHEN
     Indication: HEADACHE
     Dosage: 500 MG, QD(IF REQUIRED)
     Route: 048
     Dates: start: 20170119, end: 20170216
  10. JATROSOM [Concomitant]
     Active Substance: TRANYLCYPROMINE SULFATE\TRIFLUOPERAZINE HYDROCHLORIDE
     Indication: DEPRESSION
     Dosage: 10 MG, QD
     Route: 048
     Dates: start: 20170119, end: 20170119

REACTIONS (1)
  - Exposure during pregnancy [Unknown]
